FAERS Safety Report 14768683 (Version 5)
Quarter: 2018Q2

REPORT INFORMATION
  Report Type: Spontaneous
  Country: RU (occurrence: RU)
  Receive Date: 20180417
  Receipt Date: 20180608
  Transmission Date: 20180711
  Serious: Yes (Death, Hospitalization, Other)
  Sender: FDA-Public Use
  Company Number: RU-JNJFOC-20180418253

PATIENT
  Age: 63 Year
  Sex: Male
  Weight: 90 kg

DRUGS (2)
  1. IMBRUVICA [Suspect]
     Active Substance: IBRUTINIB
     Indication: CHRONIC LYMPHOCYTIC LEUKAEMIA
     Route: 048
     Dates: start: 20180319
  2. IMBRUVICA [Suspect]
     Active Substance: IBRUTINIB
     Indication: CHRONIC LYMPHOCYTIC LEUKAEMIA
     Route: 048
     Dates: start: 20180406, end: 20180409

REACTIONS (7)
  - Hypotension [Unknown]
  - Tumour lysis syndrome [Fatal]
  - Chronic lymphocytic leukaemia [Fatal]
  - Pyrexia [Unknown]
  - Acute lung injury [Fatal]
  - Pulmonary oedema [Fatal]
  - Nausea [Unknown]

NARRATIVE: CASE EVENT DATE: 201804
